FAERS Safety Report 18696492 (Version 1)
Quarter: 2021Q1

REPORT INFORMATION
  Report Type: Spontaneous
  Country: US (occurrence: US)
  Receive Date: 20210104
  Receipt Date: 20210104
  Transmission Date: 20210419
  Serious: No
  Sender: FDA-Public Use
  Company Number: US-UPSHER-SMITH LABORATORIES, LLC-2020USL00180

PATIENT
  Age: 80 Year
  Sex: Male
  Weight: 113.38 kg

DRUGS (19)
  1. POTASSIUM CHLORIDE MICRO?DISPERSIBLE [Suspect]
     Active Substance: POTASSIUM CHLORIDE
     Dosage: 10 MEQ, 1X/DAY (MORNING AND NIGHT)
     Route: 048
     Dates: end: 20200327
  2. PRILOSEC [Concomitant]
     Active Substance: OMEPRAZOLE MAGNESIUM
     Dosage: UNK UNK, 1X/DAY
  3. FISH OIL [Concomitant]
     Active Substance: FISH OIL
  4. FOLIC ACID. [Concomitant]
     Active Substance: FOLIC ACID
  5. POTASSIUM CHLORIDE MICRO?DISPERSIBLE [Suspect]
     Active Substance: POTASSIUM CHLORIDE
     Indication: ELECTROLYTE SUBSTITUTION THERAPY
     Dosage: 20 MEQ, 1X/DAY
     Route: 048
  6. FUROSEMIDE. [Concomitant]
     Active Substance: FUROSEMIDE
     Dosage: 40 MG, 1X/WEEK
  7. LISINOPRIL. [Concomitant]
     Active Substance: LISINOPRIL
     Dosage: 40 MG, 1X/DAY
  8. SELENIUM [Concomitant]
     Active Substance: SELENIUM
     Dosage: 20 MG, 1X/DAY
  9. TYPE N INSULIN [Concomitant]
     Dosage: 25 U, 1X/DAY AT NIGHT
  10. TAMSULOSIN [Concomitant]
     Active Substance: TAMSULOSIN
     Dosage: 0.4 MG, 1X/DAY
  11. ASPIRIN. [Concomitant]
     Active Substance: ASPIRIN
     Dosage: 81 MG, 2X/DAY
  12. MULTIVITAMIN [Concomitant]
     Active Substance: VITAMINS
  13. TYPE R INSULIN [Concomitant]
     Dosage: UNK, 3X/DAY
  14. CHLORTHALIDONE. [Concomitant]
     Active Substance: CHLORTHALIDONE
     Dosage: 12.5 MG, 1X/DAY
  15. CHROMIUM [Concomitant]
     Active Substance: CHROMIC CHLORIDE\CHROMIUM
     Dosage: 200 ?G, 1X/DAY
  16. HYDROCODONE [Concomitant]
     Active Substance: HYDROCODONE
     Dosage: 10 MG, UP TO 2X/DAY
  17. AREDS [Concomitant]
     Active Substance: MINERALS\VITAMINS
     Dosage: 2 CAPSULES, 1X/DAY
  18. MAGNESIUM [Concomitant]
     Active Substance: MAGNESIUM
  19. UNSPECIFIED MACULAR DEGENERATION PRODUCT [Concomitant]

REACTIONS (5)
  - Muscle spasms [Unknown]
  - Heart rate irregular [Recovered/Resolved]
  - Feeling abnormal [Recovered/Resolved]
  - Blood pressure increased [Recovering/Resolving]
  - Malaise [Recovered/Resolved]

NARRATIVE: CASE EVENT DATE: 20200327
